FAERS Safety Report 8874054 (Version 1)
Quarter: 2012Q4

REPORT INFORMATION
  Report Type: 
  Country: ES (occurrence: ES)
  Receive Date: 20121030
  Receipt Date: 20121030
  Transmission Date: 20130627
  Serious: Yes (Other)
  Sender: FDA-Public Use
  Company Number: ES-ASTRAZENECA-2012SE79545

PATIENT
  Age: 50 Year
  Sex: Male

DRUGS (1)
  1. PROVISACOR [Suspect]
     Indication: HYPERCHOLESTEROLAEMIA
     Route: 048
     Dates: start: 20120322, end: 20120702

REACTIONS (1)
  - Renal failure acute [Recovered/Resolved]
